FAERS Safety Report 7495928-2 (Version None)
Quarter: 2011Q2

REPORT INFORMATION
  Report Type: 
  Country: None (occurrence: None)
  Receive Date: 20110523
  Receipt Date: 20110517
  Transmission Date: 20111010
  Serious: Yes (Other)
  Sender: FDA-Public Use
  Company Number: US-SANOFI-AVENTIS-2011SA019803

PATIENT
  Age: 65 Year
  Sex: Female
  Weight: 63 kg

DRUGS (6)
  1. ATENOLOL [Concomitant]
  2. SYNTHROID [Concomitant]
  3. DILTIAZEM [Concomitant]
  4. DABIGATRAN ETEXILATE [Interacting]
     Indication: ATRIAL FIBRILLATION
     Route: 065
     Dates: start: 20110430
  5. HYDROCHLOROTHIAZIDE [Concomitant]
  6. MULTAQ [Suspect]
     Indication: ATRIAL FIBRILLATION
     Route: 065
     Dates: start: 20091101

REACTIONS (3)
  - DRUG INTERACTION [None]
  - CONJUNCTIVAL HAEMORRHAGE [None]
  - ACTIVATED PARTIAL THROMBOPLASTIN TIME PROLONGED [None]
